FAERS Safety Report 10766767 (Version 2)
Quarter: 2015Q1

REPORT INFORMATION
  Report Type: Report from Study
  Country: BR (occurrence: BR)
  Receive Date: 20150205
  Receipt Date: 20150219
  Transmission Date: 20150721
  Serious: Yes (Death, Other)
  Sender: FDA-Public Use
  Company Number: PHHY2015BR013826

PATIENT
  Sex: Female
  Weight: 35 kg

DRUGS (5)
  1. DIOVAN HCT [Suspect]
     Active Substance: HYDROCHLOROTHIAZIDE\VALSARTAN
     Indication: HYPERTENSION
     Dosage: 1 DF (320/12.5 MG), QD
     Route: 065
  2. PURAN [Concomitant]
     Active Substance: LEVOTHYROXINE SODIUM
     Indication: THYROID DISORDER
     Dosage: 1 DF (125 MG), QD (DAILY)
     Route: 048
  3. RISPERIDON [Concomitant]
     Active Substance: RISPERIDONE
     Indication: FEELING OF RELAXATION
     Dosage: 1 DF (1 MG), TID (3X/DAILY)
     Route: 048
  4. OLANZAPINE. [Concomitant]
     Active Substance: OLANZAPINE
     Indication: SLEEP DISORDER
     Dosage: 1 DF (5 MG), QD (DAILY)
     Route: 048
  5. ALPRAZOLAM. [Concomitant]
     Active Substance: ALPRAZOLAM
     Indication: SLEEP DISORDER
     Dosage: 2 DF (2 MG), QD (DAILY)
     Route: 048

REACTIONS (3)
  - Respiratory arrest [Fatal]
  - Dementia [Not Recovered/Not Resolved]
  - Multi-organ failure [Fatal]
